FAERS Safety Report 7233376-0 (Version None)
Quarter: 2011Q1

REPORT INFORMATION
  Report Type: 
  Country: None (occurrence: None)
  Receive Date: 20110119
  Receipt Date: 20110114
  Transmission Date: 20110831
  Serious: Yes (Other)
  Sender: FDA-Public Use
  Company Number: US-BRISTOL-MYERS SQUIBB COMPANY-15484983

PATIENT
  Age: 60 Year
  Sex: Female

DRUGS (5)
  1. SULFASALAZINE [Suspect]
  2. VIOXX [Suspect]
  3. LEVOXYL [Suspect]
  4. AVALIDE [Suspect]
  5. ASPIRIN [Suspect]

REACTIONS (1)
  - ANGLE CLOSURE GLAUCOMA [None]
